FAERS Safety Report 4869563-6 (Version None)
Quarter: 2005Q4

REPORT INFORMATION
  Report Type: 
  Country: None (occurrence: None)
  Receive Date: 20051227
  Receipt Date: 20051220
  Transmission Date: 20060501
  Serious: Yes (Life-Threatening, Hospitalization)
  Sender: FDA-Public Use
  Company Number: FRWYE254321DEC05

PATIENT
  Age: 17 Year
  Sex: Female

DRUGS (3)
  1. ETHINYL ESTRADIOL AND LEVONORGESTREL [Suspect]
     Indication: ORAL CONTRACEPTION
     Dosage: 1 TABLET 1X PER 1 DAY ORAL
     Route: 048
     Dates: start: 20050401, end: 20051013
  2. RHINADVIL (IBUPROFEN/PSEUDOEPHEDRINE HYDROCHLORIDE, TABLET) [Suspect]
     Dosage: 3 TABLETS TOTAL DAILY ORAL
     Route: 048
     Dates: start: 20051014, end: 20051019
  3. EXOMUC (ACETYLCYSTEINE) [Concomitant]

REACTIONS (12)
  - AKINESIA [None]
  - AORTIC VALVE INCOMPETENCE [None]
  - CARDIAC DISORDER [None]
  - CARDIOMEGALY [None]
  - CORONARY ARTERY OCCLUSION [None]
  - CORONARY ARTERY THROMBOSIS [None]
  - DILATATION VENTRICULAR [None]
  - LEFT VENTRICULAR FAILURE [None]
  - LOSS OF CONSCIOUSNESS [None]
  - MITRAL VALVE INCOMPETENCE [None]
  - MYOCARDIAL INFARCTION [None]
  - PERICARDIAL EFFUSION [None]
